FAERS Safety Report 23733037 (Version 2)
Quarter: 2024Q2

REPORT INFORMATION
  Report Type: Spontaneous
  Country: US (occurrence: US)
  Receive Date: 20240411
  Receipt Date: 20240502
  Transmission Date: 20240716
  Serious: No
  Sender: FDA-Public Use
  Company Number: US-PFIZER INC-PV202400043612

PATIENT
  Age: 90 Year
  Sex: Female

DRUGS (2)
  1. BRAFTOVI [Suspect]
     Active Substance: ENCORAFENIB
     Dosage: TWO 75 MG CAPSULES AT NIGHT
     Route: 048
     Dates: start: 20240315
  2. BRAFTOVI [Suspect]
     Active Substance: ENCORAFENIB
     Dosage: ONE 75 MG CAPSULE ONCE DAILY
     Route: 048

REACTIONS (5)
  - Nausea [Unknown]
  - Malaise [Unknown]
  - Feeling abnormal [Unknown]
  - Orthostatic intolerance [Unknown]
  - Off label use [Unknown]
